FAERS Safety Report 5745382-3 (Version None)
Quarter: 2008Q2

REPORT INFORMATION
  Report Type: 
  Country: None (occurrence: None)
  Receive Date: 20080521
  Receipt Date: 20080514
  Transmission Date: 20081010
  Serious: Yes (Other)
  Sender: FDA-Public Use
  Company Number: GB-TEVA-171663ISR

PATIENT
  Age: 30 Year
  Sex: Female

DRUGS (1)
  1. TRIMETHOPRIM [Suspect]
     Indication: ACNE
     Route: 048
     Dates: start: 20080301, end: 20080306

REACTIONS (5)
  - ALANINE AMINOTRANSFERASE INCREASED [None]
  - LETHARGY [None]
  - LEUKOPENIA [None]
  - MALAISE [None]
  - RASH [None]
